FAERS Safety Report 24681290 (Version 1)
Quarter: 2024Q4

REPORT INFORMATION
  Report Type: Report from Study
  Country: GB (occurrence: GB)
  Receive Date: 20241129
  Receipt Date: 20241129
  Transmission Date: 20250115
  Serious: Yes (Other)
  Sender: ABBVIE
  Company Number: GB-ABBVIE-6023335

PATIENT
  Sex: Female

DRUGS (2)
  1. HUMIRA [Suspect]
     Active Substance: ADALIMUMAB
     Indication: Ankylosing spondylitis
     Dosage: TWO PRE-FILLED DISPOSABLE INJECTION.
     Route: 058
     Dates: end: 202411
  2. HUMIRA [Suspect]
     Active Substance: ADALIMUMAB
     Dosage: TWO PRE-FILLED DISPOSABLE INJECTION.
     Route: 058
     Dates: start: 20241124

REACTIONS (1)
  - Shoulder fracture [Unknown]
